FAERS Safety Report 5671698-5 (Version None)
Quarter: 2008Q2

REPORT INFORMATION
  Report Type: 
  Country: None (occurrence: None)
  Receive Date: 20080229
  Receipt Date: 20080130
  Transmission Date: 20081010
  Serious: Yes (Other)
  Sender: FDA-Public Use
  Company Number: PHEH2007US14324

PATIENT
  Age: 12 Year
  Sex: Male

DRUGS (4)
  1. EXJADE [Suspect]
     Dosage: 500MG QD, ORAL
     Route: 048
     Dates: start: 20071001, end: 20071101
  2. PENICILLIN [Concomitant]
  3. FOLIC ACID [Concomitant]
  4. MIRALAX [Concomitant]

REACTIONS (4)
  - BLOOD CREATININE INCREASED [None]
  - BLOOD UREA INCREASED [None]
  - PROTEIN URINE PRESENT [None]
  - RENAL IMPAIRMENT [None]
